FAERS Safety Report 16500659 (Version 1)
Quarter: 2019Q3

REPORT INFORMATION
  Report Type: Spontaneous
  Country: US (occurrence: US)
  Receive Date: 20190628
  Receipt Date: 20190628
  Transmission Date: 20191004
  Serious: No
  Sender: FDA-Public Use
  Company Number: None

PATIENT
  Age: 32 Year

DRUGS (5)
  1. AZELASTINE HCL NASAL SPRAY 0.1% [Concomitant]
  2. OLANZAPINE TABLETS, USP 2.5 MG [Suspect]
     Active Substance: OLANZAPINE
     Indication: PRODUCT USED FOR UNKNOWN INDICATION
     Dosage: ?          QUANTITY:1 TABLET(S);?
     Route: 048
     Dates: start: 20190516
  3. CENTRUM [Suspect]
     Active Substance: VITAMINS
     Indication: VITAMIN SUPPLEMENTATION
     Dosage: ?          QUANTITY:1 DOSE;?
     Route: 048
     Dates: start: 20190610
  4. FLUTACASONE PROPIONATE NASAL SPRAY [Concomitant]
  5. TOPCARE ONE DAILY PRENATAL MULTIVITAMIN; [Concomitant]

REACTIONS (4)
  - Dyspnoea [None]
  - Abdominal discomfort [None]
  - Nausea [None]
  - Lymphadenopathy [None]

NARRATIVE: CASE EVENT DATE: 20190628
